FAERS Safety Report 7786987-8 (Version None)
Quarter: 2011Q3

REPORT INFORMATION
  Report Type: 
  Country: None (occurrence: None)
  Receive Date: 20110929
  Receipt Date: 20110923
  Transmission Date: 20111222
  Serious: Yes (Other)
  Sender: FDA-Public Use
  Company Number: FR-PFIZER INC-2011227772

PATIENT
  Age: 40 Year
  Sex: Female

DRUGS (7)
  1. BUSULFAN [Suspect]
     Dosage: 40 MG, 4X/DAY
     Route: 042
     Dates: start: 20081023, end: 20081024
  2. NO SUBJECT DRUG [Suspect]
     Dosage: UNK
  3. FLUCONAZOLE [Suspect]
     Dosage: 400 MG, 1X/DAY
     Route: 048
     Dates: start: 20081031
  4. NEORAL [Suspect]
     Dosage: 500 MG, 2X/DAY
     Route: 048
     Dates: start: 20081025
  5. FLUDARA [Suspect]
     Dosage: 45 MG, 1X/DAY
     Route: 042
     Dates: start: 20081023, end: 20081026
  6. THYMOGLOBULIN [Concomitant]
     Dosage: 125 MG, 1X/DAY
     Route: 042
     Dates: start: 20081025, end: 20081026
  7. MYCOPHENOLATE MOFETIL (CELLCEPT) [Suspect]
     Dosage: 400 MG, 1X/DAY
     Route: 048
     Dates: start: 20081029

REACTIONS (1)
  - BONE MARROW FAILURE [None]
